FAERS Safety Report 6210756-3 (Version None)
Quarter: 2009Q2

REPORT INFORMATION
  Report Type: 
  Country: None (occurrence: None)
  Receive Date: 20090527
  Receipt Date: 20090513
  Transmission Date: 20091009
  Serious: Yes (Hospitalization)
  Sender: FDA-Public Use
  Company Number: 235416K09USA

PATIENT
  Age: 25 Year
  Sex: Female
  Weight: 104 kg

DRUGS (7)
  1. REBIF [Suspect]
     Indication: MULTIPLE SCLEROSIS
     Dosage: 8.8 MCG, 3 IN 1 WEEKS, SUBCUTANEOUS; 44 MCG, 3 IN 1 WEEKS, SUBCUTANEOUS
     Route: 058
     Dates: start: 20090410, end: 20090101
  2. REBIF [Suspect]
     Indication: MULTIPLE SCLEROSIS
     Dosage: 8.8 MCG, 3 IN 1 WEEKS, SUBCUTANEOUS; 44 MCG, 3 IN 1 WEEKS, SUBCUTANEOUS
     Route: 058
     Dates: start: 20090501, end: 20090501
  3. REBIF [Suspect]
     Indication: MULTIPLE SCLEROSIS
     Dosage: 8.8 MCG, 3 IN 1 WEEKS, SUBCUTANEOUS; 44 MCG, 3 IN 1 WEEKS, SUBCUTANEOUS
     Route: 058
     Dates: start: 20090501
  4. ASPIRIN [Suspect]
     Indication: RHEUMATOID ARTHRITIS
     Dosage: 10 IN 1 DAYS,
  5. DULCOLAX [Concomitant]
  6. TYLENOL (COTYLENOL) [Concomitant]
  7. MULTIVITAMIN [Concomitant]

REACTIONS (6)
  - CHILLS [None]
  - HAEMOGLOBIN DECREASED [None]
  - HAEMORRHOIDS [None]
  - INJECTION SITE HAEMATOMA [None]
  - PAIN [None]
  - RECTAL HAEMORRHAGE [None]
